FAERS Safety Report 5176551-1 (Version None)
Quarter: 2006Q4

REPORT INFORMATION
  Report Type: 
  Country: None (occurrence: None)
  Receive Date: 20061215
  Receipt Date: 20061211
  Transmission Date: 20070319
  Serious: Yes (Hospitalization)
  Sender: FDA-Public Use
  Company Number: US-BRISTOL-MYERS SQUIBB COMPANY-13608575

PATIENT
  Age: 63 Year
  Sex: Female

DRUGS (3)
  1. CYTOXAN [Suspect]
     Route: 048
  2. DOXORUBICIN HCL [Suspect]
     Route: 042
  3. NEUPOGEN [Suspect]
     Indication: CHEMOTHERAPY
     Dates: start: 20060812

REACTIONS (5)
  - ABDOMINAL PAIN [None]
  - ABDOMINAL TENDERNESS [None]
  - DIARRHOEA HAEMORRHAGIC [None]
  - GASTROINTESTINAL HAEMORRHAGE [None]
  - HELICOBACTER INFECTION [None]
